FAERS Safety Report 8464311-5 (Version None)
Quarter: 2012Q2

REPORT INFORMATION
  Report Type: 
  Country: None (occurrence: None)
  Receive Date: 20120625
  Receipt Date: 20120612
  Transmission Date: 20120825
  Serious: Yes (Other)
  Sender: FDA-Public Use
  Company Number: US-BAYER-2012-051940

PATIENT
  Age: 70 Year
  Sex: Female
  Weight: 84.37 kg

DRUGS (3)
  1. ASPIRIN [Suspect]
     Indication: PRODUCT USED FOR UNKNOWN INDICATION
  2. XARELTO [Interacting]
     Indication: THROMBOSIS PROPHYLAXIS
     Dosage: 10 MG, QD
     Route: 048
     Dates: start: 20111129, end: 20111211
  3. XARELTO [Interacting]
     Indication: HIP ARTHROPLASTY

REACTIONS (2)
  - FAECES DISCOLOURED [None]
  - HAEMOGLOBIN DECREASED [None]
